FAERS Safety Report 12207627 (Version 2)
Quarter: 2016Q2

REPORT INFORMATION
  Report Type: Spontaneous
  Country: IT (occurrence: IT)
  Receive Date: 20160324
  Receipt Date: 20160406
  Transmission Date: 20160815
  Serious: Yes (Hospitalization)
  Sender: FDA-Public Use
  Company Number: IT-SA-2016SA058138

PATIENT
  Age: 68 Year
  Sex: Female
  Weight: 120 kg

DRUGS (14)
  1. EUDIGOX [Concomitant]
     Indication: CARDIAC FAILURE
     Route: 048
     Dates: start: 20160221, end: 20160227
  2. GLUCOPHAGE [Concomitant]
     Active Substance: METFORMIN HYDROCHLORIDE
     Indication: TYPE 2 DIABETES MELLITUS
     Dosage: -850 MG COATED TABLETS
     Route: 048
  3. PEPTAZOL [Concomitant]
     Active Substance: PANTOPRAZOLE SODIUM
     Dosage: 20 MG GASTRO-RESISTANT TABLETS
     Route: 048
  4. TAPAZOLE [Concomitant]
     Active Substance: METHIMAZOLE
     Indication: HYPERTHYROIDISM
     Route: 048
  5. CABERGOLINE. [Concomitant]
     Active Substance: CABERGOLINE
     Indication: PITUITARY TUMOUR BENIGN
     Route: 048
  6. BLOPRESS [Suspect]
     Active Substance: CANDESARTAN CILEXETIL
     Indication: CARDIAC FAILURE
     Route: 048
     Dates: start: 20160222, end: 20160227
  7. COMPETACT [Concomitant]
     Active Substance: METFORMIN HYDROCHLORIDE\PIOGLITAZONE HYDROCHLORIDE
     Dosage: 15/MG/850/MG FILM COATED TABLETS
     Route: 048
  8. CABERGOLINE. [Concomitant]
     Active Substance: CABERGOLINE
     Indication: PITUITARY TUMOUR BENIGN
     Route: 048
  9. LASIX [Suspect]
     Active Substance: FUROSEMIDE
     Indication: FLUID RETENTION
     Route: 048
     Dates: start: 20160218, end: 20160227
  10. EUDIGOX [Concomitant]
     Indication: CARDIAC FAILURE
     Route: 048
     Dates: start: 20160221, end: 20160227
  11. CARDICOR [Concomitant]
     Active Substance: BISOPROLOL
     Route: 048
  12. ZAROXOLYN [Suspect]
     Active Substance: METOLAZONE
     Dosage: STRENGTH: 5 MG
     Route: 048
     Dates: start: 20160218, end: 20160227
  13. GLIMEPIRIDE. [Concomitant]
     Active Substance: GLIMEPIRIDE
     Indication: TYPE 2 DIABETES MELLITUS
     Dosage: 1 UNIT DOSAGE
     Route: 048
  14. ZYLORIC [Concomitant]
     Active Substance: ALLOPURINOL
     Indication: HYPERURICAEMIA
     Dosage: 100 MG DIVISIBLE TABLETS
     Route: 048
     Dates: start: 20160222, end: 20160227

REACTIONS (1)
  - Acute kidney injury [Recovering/Resolving]

NARRATIVE: CASE EVENT DATE: 20160227
